FAERS Safety Report 20571300 (Version 1)
Quarter: 2022Q1

REPORT INFORMATION
  Report Type: Report from Study
  Country: US (occurrence: US)
  Receive Date: 20220309
  Receipt Date: 20220309
  Transmission Date: 20220423
  Serious: Yes (Hospitalization)
  Sender: FDA-Public Use
  Company Number: US-INSMED, INC.-2022-00287-US

PATIENT
  Age: 64 Year
  Sex: Female

DRUGS (2)
  1. ARIKAYCE [Suspect]
     Active Substance: AMIKACIN
     Indication: Mycobacterium avium complex infection
     Dosage: 590 MILLIGRAM, QD
     Route: 055
     Dates: start: 20220131, end: 20220218
  2. PREDNISONE [Concomitant]
     Active Substance: PREDNISONE
     Indication: Dyspnoea

REACTIONS (4)
  - Hospitalisation [Unknown]
  - Cough [Recovering/Resolving]
  - Dysphonia [Recovered/Resolved]
  - Dyspnoea [Recovering/Resolving]

NARRATIVE: CASE EVENT DATE: 20220131
